FAERS Safety Report 24260325 (Version 2)
Quarter: 2024Q3

REPORT INFORMATION
  Report Type: Report from Study
  Country: US (occurrence: US)
  Receive Date: 20240828
  Receipt Date: 20240930
  Transmission Date: 20241016
  Serious: Yes (Hospitalization, Other)
  Sender: TAKEDA
  Company Number: US-TAKEDA-2024TUS085088

PATIENT
  Sex: Female

DRUGS (1)
  1. FRUQUINTINIB [Suspect]
     Active Substance: FRUQUINTINIB
     Indication: Colon cancer
     Dosage: 5 MILLIGRAM
     Route: 048
     Dates: start: 20240806

REACTIONS (11)
  - Abdominal pain [Unknown]
  - Colon cancer [Unknown]
  - Malignant ascites [Unknown]
  - Pneumonia [Unknown]
  - Headache [Unknown]
  - Abdominal pain upper [Unknown]
  - Back pain [Unknown]
  - Blood pressure increased [Unknown]
  - Palmar-plantar erythrodysaesthesia syndrome [Unknown]
  - Vomiting [Unknown]
  - Drug ineffective [Unknown]
